FAERS Safety Report 23472194 (Version 1)
Quarter: 2024Q1

REPORT INFORMATION
  Report Type: Report from Study
  Country: MX (occurrence: None)
  Receive Date: 20240202
  Receipt Date: 20240202
  Transmission Date: 20240410
  Serious: Yes (Other)
  Sender: FDA-Public Use
  Company Number: 2024A024044

PATIENT
  Age: 801 Month
  Sex: Male
  Weight: 66 kg

DRUGS (1)
  1. XIGDUO XR [Suspect]
     Active Substance: DAPAGLIFLOZIN PROPANEDIOL\METFORMIN HYDROCHLORIDE
     Indication: Type 2 diabetes mellitus
     Route: 048
     Dates: start: 202307

REACTIONS (18)
  - Blood pressure abnormal [Unknown]
  - Glycosylated haemoglobin abnormal [Unknown]
  - Diabetic metabolic decompensation [Unknown]
  - Pain [Recovering/Resolving]
  - Discomfort [Recovering/Resolving]
  - Abscess limb [Recovering/Resolving]
  - Weight decreased [Unknown]
  - Muscle atrophy [Unknown]
  - Memory impairment [Unknown]
  - Blood cholesterol increased [Unknown]
  - Blood triglycerides increased [Unknown]
  - Dry mouth [Unknown]
  - Dyspepsia [Unknown]
  - Hyperchlorhydria [Unknown]
  - Dyspepsia [Unknown]
  - Insomnia [Unknown]
  - Constipation [Unknown]
  - Agitation [Unknown]

NARRATIVE: CASE EVENT DATE: 20231001
